FAERS Safety Report 25412702 (Version 3)
Quarter: 2025Q3

REPORT INFORMATION
  Report Type: Spontaneous
  Country: CN (occurrence: CN)
  Receive Date: 20250609
  Receipt Date: 20250822
  Transmission Date: 20251020
  Serious: Yes (Other)
  Sender: PFIZER
  Company Number: CN-PFIZER INC-PV202500040561

PATIENT
  Age: 12 Year
  Sex: Male

DRUGS (45)
  1. XYNTHA [Suspect]
     Active Substance: MOROCTOCOG ALFA
     Indication: Factor VIII deficiency
     Dosage: 1000 IU, 1X/DAY, INTRAVENOUS INFUSION, 1 DRIP/MIN
     Route: 041
     Dates: start: 20250103
  2. XYNTHA [Suspect]
     Active Substance: MOROCTOCOG ALFA
     Dosage: 1000 IU, 1X/DAY, INTRAVENOUS INFUSION, 50 DRIPS/MIN
     Route: 041
     Dates: start: 20250106
  3. XYNTHA [Suspect]
     Active Substance: MOROCTOCOG ALFA
     Dosage: 1000 IU, 1X/DAY, INTRAVENOUS INFUSION, 50 DRIPS/MIN
     Route: 041
     Dates: start: 20250113
  4. XYNTHA [Suspect]
     Active Substance: MOROCTOCOG ALFA
     Dosage: 1000 IU, 1X/DAY, INTRAVENOUS INFUSION, 15 DRIPS/MIN
     Route: 041
     Dates: start: 20250212
  5. XYNTHA [Suspect]
     Active Substance: MOROCTOCOG ALFA
     Dosage: 1000 IU, 1X/DAY, INTRAVENOUS INFUSION, 2 DRIPS/MIN
     Route: 041
     Dates: start: 20250226
  6. XYNTHA [Suspect]
     Active Substance: MOROCTOCOG ALFA
     Dosage: 1000 IU, 2X/DAY, INTRAVENOUS INFUSION, 1 DRIP/MIN
     Route: 041
     Dates: start: 20250304
  7. XYNTHA [Suspect]
     Active Substance: MOROCTOCOG ALFA
     Dosage: 1000 IU, 2X/DAY,  INTRAVENOUS INFUSION, 1 DRIP/MIN
     Route: 041
     Dates: start: 20250305
  8. XYNTHA [Suspect]
     Active Substance: MOROCTOCOG ALFA
     Dosage: 1000 IU, 1X/DAY, INTRAVENOUS INFUSION, 50 DRIPS/MIN
     Route: 041
     Dates: start: 20250307
  9. XYNTHA [Suspect]
     Active Substance: MOROCTOCOG ALFA
     Dosage: 1000 IU,1X/DAY, INTRAVENOUS INFUSION, 15 DRIPS/MIN
     Route: 041
     Dates: start: 20250309
  10. XYNTHA [Suspect]
     Active Substance: MOROCTOCOG ALFA
     Dosage: 1000 IU, 2X/DAY,  INTRAVENOUS INFUSION, 15 DRIPS/MIN
     Route: 041
     Dates: start: 20250312
  11. XYNTHA [Suspect]
     Active Substance: MOROCTOCOG ALFA
     Dosage: 3000 IU, ALTERNATE DAY
     Route: 042
     Dates: start: 20250331
  12. XYNTHA [Suspect]
     Active Substance: MOROCTOCOG ALFA
     Dosage: 3000 IU, ALTERNATE DAY (QOD)
     Route: 065
     Dates: start: 20250401
  13. XYNTHA [Suspect]
     Active Substance: MOROCTOCOG ALFA
     Dosage: 3000 IU, ALTERNATE DAY (QOD)
     Route: 065
     Dates: start: 20250402
  14. XYNTHA [Suspect]
     Active Substance: MOROCTOCOG ALFA
     Dosage: 3000 IU, ALTERNATE DAY (QOD)
     Route: 065
     Dates: start: 20250403
  15. XYNTHA [Suspect]
     Active Substance: MOROCTOCOG ALFA
     Dosage: 3000 IU, ALTERNATE DAY (QOD)
     Route: 065
     Dates: start: 20250407
  16. XYNTHA [Suspect]
     Active Substance: MOROCTOCOG ALFA
     Dosage: 2000 IU, 1X/DAY
     Route: 040
     Dates: start: 20250409
  17. XYNTHA [Suspect]
     Active Substance: MOROCTOCOG ALFA
     Dosage: 2000 IU, 1X/DAY
     Route: 040
     Dates: start: 20250409
  18. XYNTHA [Suspect]
     Active Substance: MOROCTOCOG ALFA
     Dosage: 2000 IU, 1X/DAY
     Route: 065
     Dates: start: 20250411
  19. XYNTHA [Suspect]
     Active Substance: MOROCTOCOG ALFA
     Dosage: 3000 IU, 1X/DAY
     Route: 041
     Dates: start: 20250411
  20. XYNTHA [Suspect]
     Active Substance: MOROCTOCOG ALFA
     Dosage: 3000 IU, 1X/DAY
     Route: 041
     Dates: start: 20250412
  21. XYNTHA [Suspect]
     Active Substance: MOROCTOCOG ALFA
     Dosage: 2000 IU, 1X/DAY
     Route: 065
     Dates: start: 20250412
  22. XYNTHA [Suspect]
     Active Substance: MOROCTOCOG ALFA
     Dosage: 2000 IU, 1X/DAY
     Route: 042
     Dates: start: 20250414
  23. XYNTHA [Suspect]
     Active Substance: MOROCTOCOG ALFA
     Dosage: 3000 IU, 1X/DAY
     Route: 065
     Dates: start: 20250416
  24. XYNTHA [Suspect]
     Active Substance: MOROCTOCOG ALFA
     Dosage: 3000 IU, 1X/DAY
     Route: 041
     Dates: start: 20250416
  25. XYNTHA [Suspect]
     Active Substance: MOROCTOCOG ALFA
     Dosage: 3000 IU, 1X/DAY
     Route: 041
     Dates: start: 20250417
  26. XYNTHA [Suspect]
     Active Substance: MOROCTOCOG ALFA
     Dosage: 3000 IU, 1X/DAY
     Route: 065
     Dates: start: 20250418
  27. XYNTHA [Suspect]
     Active Substance: MOROCTOCOG ALFA
     Dosage: 3000 IU, 1X/DAY
     Route: 041
     Dates: start: 20250418
  28. XYNTHA [Suspect]
     Active Substance: MOROCTOCOG ALFA
     Dosage: 3000 IU, 1X/DAY
     Route: 065
     Dates: start: 20250421
  29. XYNTHA [Suspect]
     Active Substance: MOROCTOCOG ALFA
     Dosage: 3000 IU, 1X/DAY
     Route: 041
     Dates: start: 20250421
  30. XYNTHA [Suspect]
     Active Substance: MOROCTOCOG ALFA
     Dosage: 3000 IU, 1X/DAY
     Route: 042
     Dates: start: 20250422
  31. XYNTHA [Suspect]
     Active Substance: MOROCTOCOG ALFA
     Dosage: 3000 IU, 1X/DAY
     Route: 042
     Dates: start: 20250505
  32. XYNTHA [Suspect]
     Active Substance: MOROCTOCOG ALFA
     Dosage: 3000 IU, 1X/DAY
     Route: 042
     Dates: start: 20250516
  33. XYNTHA [Suspect]
     Active Substance: MOROCTOCOG ALFA
     Dosage: 1000 IU, 1X/DAY
     Route: 041
     Dates: start: 20250523
  34. XYNTHA [Suspect]
     Active Substance: MOROCTOCOG ALFA
     Dosage: 1000 IU, 1X/DAY
     Route: 042
     Dates: start: 20250523
  35. XYNTHA [Suspect]
     Active Substance: MOROCTOCOG ALFA
     Dosage: 3000 IU, 1X/DAY
     Route: 041
     Dates: start: 20250529
  36. XYNTHA [Suspect]
     Active Substance: MOROCTOCOG ALFA
     Dosage: 2000 IU, 1X/DAY
     Route: 040
     Dates: start: 20250604
  37. XYNTHA [Suspect]
     Active Substance: MOROCTOCOG ALFA
     Dosage: 1200 IU, 1X/DAY
     Route: 040
     Dates: start: 20250609
  38. XYNTHA [Suspect]
     Active Substance: MOROCTOCOG ALFA
     Dosage: 2000 IU, 1X/DAY
     Route: 042
     Dates: start: 20250620
  39. XYNTHA [Suspect]
     Active Substance: MOROCTOCOG ALFA
     Dosage: 1200 IU, 1X/DAY
     Route: 040
     Dates: start: 20250623
  40. XYNTHA [Suspect]
     Active Substance: MOROCTOCOG ALFA
     Dosage: 3000 IU, 1X/DAY
     Route: 041
     Dates: start: 20250627
  41. XYNTHA [Suspect]
     Active Substance: MOROCTOCOG ALFA
     Dosage: 2000 IU, 1X/DAY
     Route: 040
     Dates: start: 20250629
  42. XYNTHA [Suspect]
     Active Substance: MOROCTOCOG ALFA
     Route: 042
     Dates: start: 20250702
  43. XYNTHA [Suspect]
     Active Substance: MOROCTOCOG ALFA
     Route: 042
     Dates: start: 20250705
  44. XYNTHA [Suspect]
     Active Substance: MOROCTOCOG ALFA
     Dosage: 1200 IU, 1X/DAY
     Route: 040
     Dates: start: 20250707
  45. XYNTHA [Suspect]
     Active Substance: MOROCTOCOG ALFA
     Indication: Factor VIII deficiency
     Dosage: 1000 IU, 1X/DAY
     Route: 041
     Dates: start: 20250523

REACTIONS (2)
  - Anti factor VIII antibody increased [Unknown]
  - Off label use [Unknown]

NARRATIVE: CASE EVENT DATE: 20250103
